FAERS Safety Report 14930874 (Version 1)
Quarter: 2018Q2

REPORT INFORMATION
  Report Type: Spontaneous
  Country: US (occurrence: US)
  Receive Date: 20180524
  Receipt Date: 20180524
  Transmission Date: 20180711
  Serious: No
  Sender: FDA-Public Use
  Company Number: US-BAUSCH-BL-2017-030819

PATIENT
  Age: 80 Year
  Sex: Female
  Weight: 47.67 kg

DRUGS (7)
  1. PROLENSA [Suspect]
     Active Substance: BROMFENAC SODIUM
     Indication: INTRAOPERATIVE CARE
     Dosage: IN THE RIGHT EYE
     Route: 047
     Dates: start: 20171005
  2. ATIVAN [Concomitant]
     Active Substance: LORAZEPAM
     Indication: PRODUCT USED FOR UNKNOWN INDICATION
     Route: 048
  3. VITAMIN D [Concomitant]
     Active Substance: CHOLECALCIFEROL
     Indication: PRODUCT USED FOR UNKNOWN INDICATION
     Route: 048
  4. DUREZOL [Suspect]
     Active Substance: DIFLUPREDNATE
     Indication: INTRAOPERATIVE CARE
     Dosage: IN THE RIGHT EYE
     Route: 047
     Dates: start: 20171005
  5. MIRALAX [Concomitant]
     Active Substance: POLYETHYLENE GLYCOL 3350
     Indication: PRODUCT USED FOR UNKNOWN INDICATION
     Route: 048
  6. LEVOXYL [Concomitant]
     Active Substance: LEVOTHYROXINE SODIUM
     Indication: PRODUCT USED FOR UNKNOWN INDICATION
     Route: 048
  7. TYLENOL [Concomitant]
     Active Substance: ACETAMINOPHEN
     Indication: PRODUCT USED FOR UNKNOWN INDICATION
     Route: 048

REACTIONS (4)
  - Headache [Not Recovered/Not Resolved]
  - Chromaturia [Not Recovered/Not Resolved]
  - Incorrect drug administration duration [Not Recovered/Not Resolved]
  - Urethritis noninfective [Not Recovered/Not Resolved]

NARRATIVE: CASE EVENT DATE: 201710
